FAERS Safety Report 15084740 (Version 1)
Quarter: 2018Q2

REPORT INFORMATION
  Report Type: Spontaneous
  Country: GB (occurrence: GB)
  Receive Date: 20180628
  Receipt Date: 20180628
  Transmission Date: 20180711
  Serious: Yes (Death, Hospitalization, Other)
  Sender: FDA-Public Use
  Company Number: GB-ABBVIE-18K-167-2401137-00

PATIENT
  Age: 76 Year
  Sex: Female

DRUGS (9)
  1. DUODOPA [Suspect]
     Active Substance: CARBIDOPA\LEVODOPA
     Dosage: DOSE INCREASED
     Route: 050
     Dates: start: 201508, end: 201508
  2. MADOPAR CR [Concomitant]
     Active Substance: BENSERAZIDE HYDROCHLORIDE\LEVODOPA
     Indication: PRODUCT USED FOR UNKNOWN INDICATION
  3. MADOPAR CR [Concomitant]
     Active Substance: BENSERAZIDE HYDROCHLORIDE\LEVODOPA
     Dates: start: 201607
  4. ROTIGOTINE PATCHES [Concomitant]
     Dates: start: 201607
  5. DUODOPA [Suspect]
     Active Substance: CARBIDOPA\LEVODOPA
     Dosage: REDUCED TO 40MG/HR
     Route: 050
     Dates: start: 201508, end: 2015
  6. ROTIGOTINE PATCHES [Concomitant]
     Indication: PRODUCT USED FOR UNKNOWN INDICATION
  7. DUODOPA [Suspect]
     Active Substance: CARBIDOPA\LEVODOPA
     Dosage: 174 MG PRIMING DOSE AND 74 MG/HR
     Route: 050
     Dates: start: 201511
  8. DUODOPA [Suspect]
     Active Substance: CARBIDOPA\LEVODOPA
     Indication: PARKINSON^S DISEASE
     Dosage: 48 MG/HR AND PRIMING DOSE
     Route: 050
     Dates: start: 201506, end: 2015
  9. DUODOPA [Suspect]
     Active Substance: CARBIDOPA\LEVODOPA
     Dosage: 24 HR PUMP (DAY TIME 86MG /HR, NIGHT TIME 42MG/HR)
     Route: 050
     Dates: start: 201607

REACTIONS (9)
  - Wound dehiscence [Fatal]
  - Weight decreased [Unknown]
  - Fall [Unknown]
  - On and off phenomenon [Unknown]
  - Peritonitis [Fatal]
  - Drug effect variable [Unknown]
  - Intestinal prolapse [Unknown]
  - Dyskinesia [Unknown]
  - Akinesia [Unknown]

NARRATIVE: CASE EVENT DATE: 201508
